FAERS Safety Report 8394580-1 (Version None)
Quarter: 2012Q2

REPORT INFORMATION
  Report Type: 
  Country: None (occurrence: None)
  Receive Date: 20120525
  Receipt Date: 20120525
  Transmission Date: 20120825
  Serious: Yes (Hospitalization)
  Sender: FDA-Public Use
  Company Number: None

PATIENT
  Age: 70 Year
  Sex: Female
  Weight: 49.1 kg

DRUGS (1)
  1. FORTICAL [Suspect]
     Indication: OSTEOPOROSIS
     Dosage: 200U PER SPRAY DAILY NASAL SPRAY
     Route: 045
     Dates: start: 20120414, end: 20120510

REACTIONS (7)
  - HEADACHE [None]
  - NAUSEA [None]
  - BACK PAIN [None]
  - HOT FLUSH [None]
  - PRODUCT FORMULATION ISSUE [None]
  - FATIGUE [None]
  - CONFUSIONAL STATE [None]
